FAERS Safety Report 8797228 (Version 1)
Quarter: 2012Q4

REPORT INFORMATION
  Report Type: 
  Country: US (occurrence: US)
  Receive Date: 20120919
  Receipt Date: 20120919
  Transmission Date: 20130627
  Serious: Yes (Other)
  Sender: FDA-Public Use
  Company Number: US-MERCK-1209USA002718

PATIENT
  Sex: Female

DRUGS (2)
  1. REBETOL [Suspect]
  2. PEGINTRON [Suspect]

REACTIONS (1)
  - Exposure via father [Unknown]
